FAERS Safety Report 25966258 (Version 2)
Quarter: 2025Q4

REPORT INFORMATION
  Report Type: Spontaneous
  Country: US (occurrence: US)
  Receive Date: 20251028
  Receipt Date: 20251031
  Transmission Date: 20260119
  Serious: No
  Sender: AMGEN
  Company Number: US-AMGEN-USASP2025210932

PATIENT

DRUGS (1)
  1. EVENITY [Suspect]
     Active Substance: ROMOSOZUMAB-AQQG
     Indication: Product used for unknown indication
     Dosage: UNK, QD
     Route: 065

REACTIONS (2)
  - Injection site urticaria [Unknown]
  - Injection site swelling [Unknown]
